FAERS Safety Report 6683380-6 (Version None)
Quarter: 2010Q2

REPORT INFORMATION
  Report Type: 
  Country: None (occurrence: None)
  Receive Date: 20100415
  Receipt Date: 20100414
  Transmission Date: 20101027
  Serious: Yes (Death, Other)
  Sender: FDA-Public Use
  Company Number: US-ROXANE LABORATORIES, INC.-2010-RO-00417RO

PATIENT
  Age: 58 Year
  Sex: Female

DRUGS (2)
  1. MORPHINE [Suspect]
     Indication: DYSPNOEA
  2. MORPHINE [Suspect]
     Route: 042

REACTIONS (2)
  - DEATH [None]
  - DYSPNOEA [None]
